FAERS Safety Report 5836392-6 (Version None)
Quarter: 2008Q3

REPORT INFORMATION
  Report Type: 
  Country: None (occurrence: None)
  Receive Date: 20080806
  Receipt Date: 20080806
  Transmission Date: 20090109
  Serious: Yes (Hospitalization)
  Sender: FDA-Public Use
  Company Number: None

PATIENT
  Age: 37 Year
  Sex: Female
  Weight: 66.6788 kg

DRUGS (2)
  1. BOTOX [Suspect]
     Indication: MYALGIA
     Dosage: INJECTABLE ONCE 5/30/2008
  2. SYNTHROID [Concomitant]

REACTIONS (4)
  - ANXIETY [None]
  - DIARRHOEA [None]
  - IMPAIRED WORK ABILITY [None]
  - PANIC ATTACK [None]
